FAERS Safety Report 7395348-5 (Version None)
Quarter: 2011Q2

REPORT INFORMATION
  Report Type: 
  Country: None (occurrence: None)
  Receive Date: 20110405
  Receipt Date: 20110331
  Transmission Date: 20111010
  Serious: Yes (Other)
  Sender: FDA-Public Use
  Company Number: AU-PFIZER INC-2011039693

PATIENT
  Age: 57 Year
  Sex: Male
  Weight: 101 kg

DRUGS (2)
  1. LIPITOR [Suspect]
     Indication: DYSLIPIDAEMIA
     Dosage: 20 MG, 1X/DAY
     Dates: start: 20060101
  2. LIPITOR [Suspect]
     Indication: HYPERCHOLESTEROLAEMIA

REACTIONS (1)
  - AMNESIA [None]
